FAERS Safety Report 24642603 (Version 1)
Quarter: 2024Q4

REPORT INFORMATION
  Report Type: Spontaneous
  Country: US (occurrence: US)
  Receive Date: 20241120
  Receipt Date: 20241120
  Transmission Date: 20250115
  Serious: Yes (Hospitalization, Other)
  Sender: DR REDDYS
  Company Number: US-DRL-USA-LIT/USA/24/0017073

PATIENT
  Age: 68 Year
  Sex: Female

DRUGS (4)
  1. DOXORUBICIN [Suspect]
     Active Substance: DOXORUBICIN
     Indication: Adenoid cystic carcinoma
  2. CYCLOPHOSPHAMIDE [Suspect]
     Active Substance: CYCLOPHOSPHAMIDE
     Indication: Invasive ductal breast carcinoma
  3. TAXOTERE [Concomitant]
     Active Substance: DOCETAXEL
     Indication: Invasive ductal breast carcinoma
  4. CISPLATIN [Concomitant]
     Active Substance: CISPLATIN
     Indication: Adenoid cystic carcinoma

REACTIONS (3)
  - Cardiac dysfunction [Recovered/Resolved]
  - Cardiotoxicity [Recovered/Resolved]
  - Product use in unapproved indication [Unknown]
